FAERS Safety Report 15773833 (Version 2)
Quarter: 2019Q1

REPORT INFORMATION
  Report Type: Report from Study
  Country: None (occurrence: CA)
  Receive Date: 20181229
  Receipt Date: 20190222
  Transmission Date: 20190417
  Serious: Yes (Hospitalization, Other)
  Sender: FDA-Public Use
  Company Number: CA-ABBVIE-18K-028-2607379-00

PATIENT
  Age: 75 Year
  Sex: Female

DRUGS (2)
  1. HUMIRA [Suspect]
     Active Substance: ADALIMUMAB
     Indication: CROHN^S DISEASE
     Route: 058
     Dates: start: 20151123, end: 20181116
  2. HUMIRA [Suspect]
     Active Substance: ADALIMUMAB
     Route: 058
     Dates: start: 20181221

REACTIONS (4)
  - Intestinal stenosis [Recovering/Resolving]
  - Intestinal obstruction [Recovered/Resolved]
  - Neoplasm malignant [Unknown]
  - Intestinal fibrosis [Recovering/Resolving]

NARRATIVE: CASE EVENT DATE: 20181119
